FAERS Safety Report 20875795 (Version 1)
Quarter: 2022Q2

REPORT INFORMATION
  Report Type: Report from Study
  Country: HK (occurrence: HK)
  Receive Date: 20220526
  Receipt Date: 20220526
  Transmission Date: 20220721
  Serious: Yes (Death, Other)
  Sender: FDA-Public Use
  Company Number: HK-ASTELLAS-2022US018320

PATIENT
  Age: 49 Year
  Sex: Female

DRUGS (4)
  1. BENDAMUSTINE HYDROCHLORIDE [Suspect]
     Active Substance: BENDAMUSTINE HYDROCHLORIDE
     Indication: Mantle cell lymphoma
     Dosage: (3 CYCLES)
     Route: 042
  2. OBINUTUZUMAB [Concomitant]
     Active Substance: OBINUTUZUMAB
     Indication: Mantle cell lymphoma
     Dosage: (3 CYCLES)
     Route: 065
  3. CYTARABINE [Concomitant]
     Active Substance: CYTARABINE
     Indication: Mantle cell lymphoma
     Dosage: (3 CYCLES)
     Route: 065
  4. ITRACONAZOLE [Concomitant]
     Active Substance: ITRACONAZOLE
     Indication: Antifungal prophylaxis
     Route: 065

REACTIONS (5)
  - Systemic candida [Fatal]
  - Cytomegalovirus chorioretinitis [Recovering/Resolving]
  - Cytomegalovirus colitis [Recovered/Resolved]
  - Cytomegalovirus duodenitis [Unknown]
  - Cytomegalovirus infection reactivation [Recovered/Resolved]
